FAERS Safety Report 5545933-8 (Version None)
Quarter: 2007Q4

REPORT INFORMATION
  Report Type: 
  Country: None (occurrence: None)
  Receive Date: 20071211
  Receipt Date: 20071031
  Transmission Date: 20080405
  Serious: No
  Sender: FDA-Public Use
  Company Number: US-ASTRAZENECA-2007UW25257

PATIENT
  Age: 67 Year
  Sex: Female
  Weight: 86.2 kg

DRUGS (14)
  1. SYMBICORT [Suspect]
     Indication: ASTHMA
     Dosage: 160/4.5UG TWO INHALATIONW BID
     Route: 055
     Dates: start: 20071001
  2. NEXIUM [Concomitant]
     Route: 048
  3. SINGULAIR [Concomitant]
  4. LIPITOR [Concomitant]
  5. ANTIVERT [Concomitant]
  6. ALLEGRA [Concomitant]
  7. LISINOPRIL [Concomitant]
  8. VERAPAMIL [Concomitant]
  9. MIRAPEX [Concomitant]
  10. DETROL LA [Concomitant]
  11. ICAR LA [Concomitant]
  12. CARAFATE [Concomitant]
  13. NAPROXEN [Concomitant]
  14. VOLTAREN [Concomitant]

REACTIONS (3)
  - FORMICATION [None]
  - MUSCLE SPASMS [None]
  - PAIN IN EXTREMITY [None]
